FAERS Safety Report 4608855-2 (Version None)
Quarter: 2005Q1

REPORT INFORMATION
  Report Type: 
  Country: None (occurrence: None)
  Receive Date: 20050315
  Receipt Date: 20050223
  Transmission Date: 20050727
  Serious: Yes (Disabling)
  Sender: FDA-Public Use
  Company Number: DE-GLAXOSMITHKLINE-D0045971A

PATIENT
  Age: 62 Year
  Sex: Female
  Weight: 78 kg

DRUGS (5)
  1. REQUIP [Suspect]
     Indication: PARKINSON'S DISEASE
     Route: 048
     Dates: start: 20020423
  2. ISICOM [Concomitant]
     Indication: PARKINSON'S DISEASE
     Dosage: 100MG THREE TIMES PER DAY
     Route: 048
     Dates: start: 20010801
  3. AMANTADINE HCL [Concomitant]
     Indication: PARKINSON'S DISEASE
     Dosage: 300MG PER DAY
     Route: 048
     Dates: start: 20010301
  4. NACOM [Concomitant]
     Indication: PARKINSON'S DISEASE
     Dosage: 100MG PER DAY
     Route: 048
     Dates: start: 20041210
  5. SELEGILIN [Concomitant]
     Indication: PARKINSON'S DISEASE
     Dosage: 5MG TWICE PER DAY
     Route: 048
     Dates: start: 20010822, end: 20050223

REACTIONS (1)
  - AORTIC VALVE INCOMPETENCE [None]
